FAERS Safety Report 8008096-5 (Version None)
Quarter: 2011Q4

REPORT INFORMATION
  Report Type: 
  Country: None (occurrence: None)
  Receive Date: 20111227
  Receipt Date: 20111221
  Transmission Date: 20120403
  Serious: Yes (Other)
  Sender: FDA-Public Use
  Company Number: PHHY2011US05427

PATIENT
  Sex: Female

DRUGS (7)
  1. PROTONIX [Concomitant]
     Dosage: 40 MG, QD
  2. TRAMADOL HCL [Concomitant]
     Dosage: UNK
  3. MACROBID [Concomitant]
     Dosage: 100 MG, QD
  4. PAXIL [Concomitant]
     Dosage: 20 MG, QD
  5. TEGRETOL [Concomitant]
     Dosage: 100 MG, BID
  6. GILENYA [Suspect]
     Indication: MULTIPLE SCLEROSIS RELAPSE
     Dosage: 0.5 MG, QD
     Route: 048
     Dates: start: 20110119
  7. NAPROSYN [Concomitant]
     Dosage: 500 MG, BID

REACTIONS (3)
  - DRUG INEFFECTIVE [None]
  - TREMOR [None]
  - URINARY TRACT INFECTION [None]
